FAERS Safety Report 8436441 (Version 4)
Quarter: 2013Q1

REPORT INFORMATION
  Report Type: Report from Study
  Country: DE (occurrence: DE)
  Receive Date: 20120301
  Receipt Date: 20130329
  Transmission Date: 20140127
  Serious: No
  Sender: FDA-Public Use
  Company Number: PHHO2012DE003352

PATIENT
  Age: 44 Year
  Sex: Male
  Weight: 88 kg

DRUGS (7)
  1. CEFUROXIME [Suspect]
     Indication: PHARYNGITIS
     Dosage: 500 MG, BID
     Route: 048
     Dates: start: 20120221
  2. BLINDED AIN457 [Suspect]
     Indication: PSORIASIS
     Dosage: CODE NOT BROKEN
     Route: 058
     Dates: start: 20120213, end: 20120216
  3. ETANERCEPT [Suspect]
     Indication: PSORIASIS
     Dosage: CODE NOT BROKEN
     Route: 058
     Dates: start: 20120213, end: 20120216
  4. BLINDED NO TREATMENT RECEIVED [Suspect]
     Indication: PSORIASIS
     Dosage: CODE NOT BROKEN
     Route: 058
     Dates: start: 20120213, end: 20120216
  5. BLINDED PLACEBO [Suspect]
     Indication: PSORIASIS
     Dosage: CODE NOT BROKEN
     Route: 058
     Dates: start: 20120213, end: 20120216
  6. VICTOZA [Concomitant]
     Indication: TYPE 2 DIABETES MELLITUS
     Dosage: 0.6 MG, UNK
     Route: 048
     Dates: start: 201105
  7. INEGY [Concomitant]
     Indication: DYSLIPIDAEMIA
     Dosage: 10/40 MG, UNK
     Route: 048
     Dates: start: 20110130, end: 20120212

REACTIONS (1)
  - Laryngeal oedema [Recovered/Resolved]
